FAERS Safety Report 24991058 (Version 1)
Quarter: 2025Q1

REPORT INFORMATION
  Report Type: Report from Study
  Country: US (occurrence: US)
  Receive Date: 20250220
  Receipt Date: 20250220
  Transmission Date: 20250408
  Serious: Yes (Death, Hospitalization, Other)
  Sender: PFIZER
  Company Number: US-PFIZER INC-PV202300079414

PATIENT
  Age: 92 Year
  Sex: Male

DRUGS (16)
  1. VYNDAQEL [Suspect]
     Active Substance: TAFAMIDIS MEGLUMINE
     Indication: Amyloidosis
     Dosage: 80 MG, DAILY
     Route: 048
     Dates: start: 20220525
  2. VYNDAQEL [Suspect]
     Active Substance: TAFAMIDIS MEGLUMINE
  3. VYNDAQEL [Suspect]
     Active Substance: TAFAMIDIS MEGLUMINE
     Dosage: TAKE 80MG (4 CAPSULES) BY MOUTH EVERY DAY
     Route: 048
  4. BRIMONIDINE TARTRATE\TIMOLOL MALEATE [Concomitant]
     Active Substance: BRIMONIDINE TARTRATE\TIMOLOL MALEATE
  5. BUDESONIDE [Concomitant]
     Active Substance: BUDESONIDE
  6. COMBIGAN [Concomitant]
     Active Substance: BRIMONIDINE TARTRATE\TIMOLOL MALEATE
  7. DROXIDOPA [Concomitant]
     Active Substance: DROXIDOPA
  8. FARXIGA [Concomitant]
     Active Substance: DAPAGLIFLOZIN PROPANEDIOL
  9. FINASTERIDE [Concomitant]
     Active Substance: FINASTERIDE
  10. LUMIGAN [Concomitant]
     Active Substance: BIMATOPROST
  11. MIDODRINE [Concomitant]
     Active Substance: MIDODRINE
  12. NYSTATIN [Concomitant]
     Active Substance: NYSTATIN
  13. OXYBUTYNIN [Concomitant]
     Active Substance: OXYBUTYNIN
  14. PAROXETINE [Concomitant]
     Active Substance: PAROXETINE
  15. TAMSULOSIN [Concomitant]
     Active Substance: TAMSULOSIN
  16. TORSEMIDE [Concomitant]
     Active Substance: TORSEMIDE

REACTIONS (5)
  - Death [Fatal]
  - Pneumonia [Recovered/Resolved]
  - Fall [Not Recovered/Not Resolved]
  - Product dose omission in error [Unknown]
  - Product dose omission issue [Unknown]

NARRATIVE: CASE EVENT DATE: 20230901
